FAERS Safety Report 11516059 (Version 1)
Quarter: 2015Q3

REPORT INFORMATION
  Report Type: Spontaneous
  Country: US (occurrence: US)
  Receive Date: 20150917
  Receipt Date: 20150917
  Transmission Date: 20151125
  Serious: Yes (Death, Other)
  Sender: FDA-Public Use
  Company Number: US-TAKEDA-2014TUS006839

PATIENT

DRUGS (7)
  1. METFORMIN [Concomitant]
     Active Substance: METFORMIN HYDROCHLORIDE
     Dosage: 1000 MG, UNK
     Dates: start: 2005, end: 2012
  2. LANTUS [Concomitant]
     Active Substance: INSULIN GLARGINE
     Dosage: 100 ML, UNK
     Dates: start: 2005, end: 2012
  3. AMARYL [Concomitant]
     Active Substance: GLIMEPIRIDE
     Dosage: 4 MG, UNK
     Dates: start: 2011, end: 2012
  4. ACTOS [Suspect]
     Active Substance: PIOGLITAZONE HYDROCHLORIDE
     Indication: TYPE 2 DIABETES MELLITUS
     Dosage: 45 MG, UNK
     Route: 048
     Dates: start: 200408, end: 201101
  5. NOVOLOG [Concomitant]
     Active Substance: INSULIN ASPART
     Indication: DIABETES MELLITUS
     Dosage: 10 ML, UNK
     Dates: start: 2010, end: 2012
  6. INSULIN                            /01223401/ [Concomitant]
     Indication: DIABETES MELLITUS
     Dosage: SLIDING SCALE, UNK
     Dates: start: 2004, end: 2012
  7. HUMALOG [Concomitant]
     Active Substance: INSULIN LISPRO
     Dosage: 100 ML, UNK
     Dates: start: 2004, end: 2011

REACTIONS (1)
  - Bladder cancer [Fatal]

NARRATIVE: CASE EVENT DATE: 201001
